FAERS Safety Report 8332981-8 (Version None)
Quarter: 2012Q1

REPORT INFORMATION
  Report Type: 
  Country: None (occurrence: None)
  Receive Date: 20120327
  Receipt Date: 20110208
  Transmission Date: 20120608
  Serious: Yes (Other)
  Sender: FDA-Public Use
  Company Number: PHHY2011US10258

PATIENT
  Sex: Female
  Weight: 62 kg

DRUGS (8)
  1. GLEEVEC [Suspect]
     Dosage: 600 MG DAILY (400 MG TABLET, 1 AND HALF TABLET EVERY DAY),ORAL
     Route: 048
     Dates: start: 20020101
  2. XANAX [Concomitant]
  3. LUNESTA [Concomitant]
  4. CELEXA [Concomitant]
  5. PIROXICAM [Concomitant]
  6. HYDROCODONE BITARTRATE + ACETAMINOPHEN [Concomitant]
  7. CALCIUM CARBONATE W/VITAMIN D (CALCIUM CARBONATE, VITAMIN D) [Concomitant]
  8. BIOTIN (BIOTIN) [Concomitant]

REACTIONS (4)
  - DEPRESSION [None]
  - MENSTRUAL DISORDER [None]
  - FATIGUE [None]
  - SKIN ATROPHY [None]
